FAERS Safety Report 23332060 (Version 3)
Quarter: 2024Q1

REPORT INFORMATION
  Report Type: Report from Study
  Country: CN (occurrence: CN)
  Receive Date: 20231222
  Receipt Date: 20240117
  Transmission Date: 20240410
  Serious: No
  Sender: FDA-Public Use
  Company Number: CN-PFIZER INC-PV202300205614

PATIENT
  Age: 89 Year
  Sex: Male
  Weight: 72 kg

DRUGS (129)
  1. NIRMATRELVIR\RITONAVIR [Suspect]
     Active Substance: NIRMATRELVIR\RITONAVIR
     Indication: COVID-19
     Dosage: [NIRMATRELVIR 150 MG]/[RITONAVIR 100 MG], Q12H
     Route: 048
     Dates: start: 20220502, end: 20220508
  2. NIRMATRELVIR\RITONAVIR [Suspect]
     Active Substance: NIRMATRELVIR\RITONAVIR
     Dosage: [NIRMATRELVIR 300 MG]/[RITONAVIR 100 MG], Q12H
     Route: 048
     Dates: start: 20220508, end: 20220509
  3. NIRMATRELVIR\RITONAVIR [Suspect]
     Active Substance: NIRMATRELVIR\RITONAVIR
     Dosage: [NIRMATRELVIR 150 MG]/[RITONAVIR 50 MG], Q12H
     Route: 048
     Dates: start: 20220509, end: 20220513
  4. CLOPIDOGREL BISULFATE [Concomitant]
     Active Substance: CLOPIDOGREL BISULFATE
     Indication: Anticoagulant therapy
     Dosage: UNK
     Route: 048
     Dates: start: 20220427, end: 20220508
  5. LOSARTAN POTASSIUM [Concomitant]
     Active Substance: LOSARTAN POTASSIUM
     Indication: Mineral supplementation
     Dosage: UNK
     Route: 048
     Dates: start: 20220427, end: 20220508
  6. LEVAMLODIPINE BESYLATE [Concomitant]
     Active Substance: LEVAMLODIPINE BESYLATE
     Dosage: UNK
     Route: 048
     Dates: start: 20220426, end: 20220508
  7. FEBUXOSTAT [Concomitant]
     Active Substance: FEBUXOSTAT
     Indication: Blood uric acid increased
     Dosage: UNK
     Route: 048
     Dates: start: 20220427, end: 20220504
  8. POTASSIUM CHLORIDE [Concomitant]
     Active Substance: POTASSIUM CHLORIDE
     Indication: Mineral supplementation
     Dosage: 10% POTASSIUM CHLORIDE INJECTION
     Route: 042
     Dates: start: 20220427, end: 20220427
  9. POTASSIUM CHLORIDE [Concomitant]
     Active Substance: POTASSIUM CHLORIDE
     Indication: Infusion
     Dosage: 10% POTASSIUM CHLORIDE INJECTION
     Route: 048
     Dates: start: 20220427, end: 20220427
  10. POTASSIUM CHLORIDE [Concomitant]
     Active Substance: POTASSIUM CHLORIDE
     Dosage: 10% POTASSIUM CHLORIDE INJECTION
     Route: 042
     Dates: start: 20220430, end: 20220430
  11. POTASSIUM CHLORIDE [Concomitant]
     Active Substance: POTASSIUM CHLORIDE
     Dosage: 10% POTASSIUM CHLORIDE INJECTION
     Route: 042
     Dates: start: 20220502, end: 20220502
  12. POTASSIUM CHLORIDE [Concomitant]
     Active Substance: POTASSIUM CHLORIDE
     Dosage: SUSTAINED-RELEASE TABLETS
     Route: 048
     Dates: start: 20220430, end: 20220502
  13. POTASSIUM CHLORIDE [Concomitant]
     Active Substance: POTASSIUM CHLORIDE
     Dosage: 10% POTASSIUM CHLORIDE INJECTION
     Route: 042
     Dates: start: 20220505, end: 20220505
  14. POTASSIUM CHLORIDE [Concomitant]
     Active Substance: POTASSIUM CHLORIDE
     Dosage: 10% POTASSIUM CHLORIDE INJECTION
     Route: 042
     Dates: start: 20220508, end: 20220508
  15. POTASSIUM CHLORIDE [Concomitant]
     Active Substance: POTASSIUM CHLORIDE
     Dosage: 10% POTASSIUM CHLORIDE INJECTION
     Route: 042
     Dates: start: 20220509, end: 20220509
  16. POTASSIUM CHLORIDE [Concomitant]
     Active Substance: POTASSIUM CHLORIDE
     Dosage: 10% POTASSIUM CHLORIDE INJECTION, NASOGASTRIC
     Route: 045
     Dates: start: 20220511, end: 20220513
  17. POTASSIUM CHLORIDE [Concomitant]
     Active Substance: POTASSIUM CHLORIDE
     Dosage: 10% POTASSIUM CHLORIDE INJECTION
     Route: 042
     Dates: start: 20220515, end: 20220515
  18. LOW MOLECULAR WEIGHT HEPARIN, SODIUM SALT [Concomitant]
     Indication: COVID-19
     Dosage: UNK
     Route: 058
     Dates: start: 20220502, end: 20220504
  19. LOW MOLECULAR WEIGHT HEPARIN, SODIUM SALT [Concomitant]
     Dosage: UNK
     Route: 058
     Dates: start: 20220513, end: 20220516
  20. LOW MOLECULAR WEIGHT HEPARIN, SODIUM SALT [Concomitant]
     Dosage: UNK
     Route: 058
     Dates: start: 20220508, end: 20220513
  21. ENTERAL NUTRITIONAL SUSPENSION (TPF) [Concomitant]
     Indication: Nutritional supplementation
     Dosage: UNK
     Route: 045
     Dates: start: 20220502, end: 20220503
  22. ENTERAL NUTRITIONAL SUSPENSION (TPF) [Concomitant]
     Dosage: UNK
     Route: 045
     Dates: start: 20220505, end: 20220505
  23. ENTERAL NUTRITIONAL SUSPENSION (TPF) [Concomitant]
     Dosage: UNK
     Route: 045
     Dates: start: 20220505, end: 20220507
  24. ENTERAL NUTRITIONAL SUSPENSION (TPF) [Concomitant]
     Dosage: UNK
     Route: 045
     Dates: start: 20220506, end: 20220513
  25. ENTERAL NUTRITIONAL SUSPENSION (TPF) [Concomitant]
     Dosage: UNK
  26. CEFEPIME HYDROCHLORIDE [Concomitant]
     Active Substance: CEFEPIME HYDROCHLORIDE
     Indication: Infection
     Dosage: UNK
     Route: 042
     Dates: start: 20220502, end: 20220503
  27. CEFEPIME HYDROCHLORIDE [Concomitant]
     Active Substance: CEFEPIME HYDROCHLORIDE
     Dosage: UNK
     Route: 042
     Dates: start: 20220509, end: 20220513
  28. LEVOFLOXACIN SODIUM [Concomitant]
     Active Substance: LEVOFLOXACIN SODIUM
     Indication: Infection
     Dosage: UNK
     Route: 042
     Dates: start: 20220502, end: 20220503
  29. IPRATROPIUM BROMIDE [Concomitant]
     Active Substance: IPRATROPIUM BROMIDE\IPRATROPIUM BROMIDE ANHYDROUS
     Indication: Asthma
     Dosage: SOLUTION FOR INHALATION, INHALATION (INH)
     Route: 055
     Dates: start: 20220503, end: 20220503
  30. IPRATROPIUM BROMIDE [Concomitant]
     Active Substance: IPRATROPIUM BROMIDE\IPRATROPIUM BROMIDE ANHYDROUS
     Dosage: SOLUTION FOR INHALATION, INHALATION (INH)
     Route: 055
     Dates: start: 20220504, end: 20220504
  31. CHYMOSIN [Concomitant]
     Indication: Productive cough
     Dosage: INHALATION (INH)
     Route: 055
     Dates: start: 20220503, end: 20220503
  32. BUDESONIDE [Concomitant]
     Active Substance: BUDESONIDE
     Indication: Productive cough
     Dosage: SUSPENSION FOR INHALATION, INHALATION (INH)
     Route: 055
     Dates: start: 20220503, end: 20220503
  33. AMBROXOL HYDROCHLORIDE [Concomitant]
     Active Substance: AMBROXOL HYDROCHLORIDE
     Indication: Productive cough
     Dosage: INJECTION
     Route: 042
     Dates: start: 20220503, end: 20220504
  34. AMBROXOL HYDROCHLORIDE [Concomitant]
     Active Substance: AMBROXOL HYDROCHLORIDE
     Dosage: CAPSULE
     Route: 048
     Dates: start: 20220506, end: 20220508
  35. AMBROXOL HYDROCHLORIDE [Concomitant]
     Active Substance: AMBROXOL HYDROCHLORIDE
     Dosage: INJECTION
     Route: 042
     Dates: start: 20220508, end: 20220508
  36. AMBROXOL HYDROCHLORIDE [Concomitant]
     Active Substance: AMBROXOL HYDROCHLORIDE
     Dosage: INJECTION
     Route: 042
     Dates: start: 20220508, end: 20220513
  37. AMBROXOL HYDROCHLORIDE [Concomitant]
     Active Substance: AMBROXOL HYDROCHLORIDE
     Dosage: INJECTION
     Route: 042
     Dates: start: 20220513, end: 20220530
  38. NADROPARIN CALCIUM [Concomitant]
     Active Substance: NADROPARIN CALCIUM
     Indication: COVID-19
     Dosage: UNK
     Route: 058
     Dates: start: 20220504, end: 20220507
  39. NADROPARIN CALCIUM [Concomitant]
     Active Substance: NADROPARIN CALCIUM
     Dosage: UNK
     Route: 058
     Dates: start: 20220507, end: 20220508
  40. THYMOPOLYPEPTIDES [Concomitant]
     Indication: COVID-19
     Dosage: UNK
     Route: 058
     Dates: start: 20220505, end: 20220505
  41. THYMOPOLYPEPTIDES [Concomitant]
     Dosage: UNK
     Route: 058
     Dates: start: 20220506, end: 20220508
  42. THYMOPOLYPEPTIDES [Concomitant]
     Dosage: UNK
     Route: 058
     Dates: start: 20220509, end: 20220513
  43. MOSAPRIDE CITRATE [Concomitant]
     Active Substance: MOSAPRIDE CITRATE
     Indication: Gastrointestinal disorder
     Dosage: UNK
     Route: 048
     Dates: start: 20220505, end: 20220508
  44. INSULIN HUMAN [Concomitant]
     Active Substance: INSULIN HUMAN
     Indication: Cardiomyopathy
     Dosage: UNK
     Route: 042
     Dates: start: 20220429, end: 20220429
  45. INSULIN HUMAN [Concomitant]
     Active Substance: INSULIN HUMAN
     Indication: Hypoglycaemia
     Dosage: UNK
     Route: 042
     Dates: start: 20220502, end: 20220502
  46. INSULIN HUMAN [Concomitant]
     Active Substance: INSULIN HUMAN
     Indication: Infusion
     Dosage: UNK
     Route: 058
     Dates: start: 20220504, end: 20220504
  47. INSULIN HUMAN [Concomitant]
     Active Substance: INSULIN HUMAN
     Indication: Blood glucose abnormal
     Dosage: UNK
     Route: 042
     Dates: start: 20220505, end: 20220506
  48. INSULIN HUMAN [Concomitant]
     Active Substance: INSULIN HUMAN
     Indication: Fluid replacement
     Dosage: UNK
     Route: 058
     Dates: start: 20220507, end: 20220508
  49. INSULIN HUMAN [Concomitant]
     Active Substance: INSULIN HUMAN
     Dosage: UNK
     Route: 042
     Dates: start: 20220508, end: 20220509
  50. INSULIN HUMAN [Concomitant]
     Active Substance: INSULIN HUMAN
     Dosage: UNK
     Route: 042
     Dates: start: 20220510, end: 20220510
  51. INSULIN HUMAN [Concomitant]
     Active Substance: INSULIN HUMAN
     Dosage: UNK
     Route: 042
     Dates: start: 20220512, end: 20220512
  52. INSULIN HUMAN [Concomitant]
     Active Substance: INSULIN HUMAN
     Dosage: UNK
     Route: 042
     Dates: start: 20220513, end: 20220514
  53. INSULIN HUMAN [Concomitant]
     Active Substance: INSULIN HUMAN
     Dosage: UNK
     Route: 042
     Dates: start: 20220519, end: 20220520
  54. INSULIN HUMAN [Concomitant]
     Active Substance: INSULIN HUMAN
     Dosage: UNK
     Route: 042
     Dates: start: 20220521, end: 20220521
  55. INSULIN HUMAN [Concomitant]
     Active Substance: INSULIN HUMAN
     Dosage: UNK
     Route: 042
     Dates: start: 20220523, end: 20220526
  56. INSULIN HUMAN [Concomitant]
     Active Substance: INSULIN HUMAN
     Dosage: UNK
     Route: 042
     Dates: start: 20220528, end: 20220528
  57. INSULIN HUMAN [Concomitant]
     Active Substance: INSULIN HUMAN
     Indication: Hypoglycaemia
     Dosage: ISOPHANE PROTAMINE RECOMBINANT HUMAN INSULIN
     Route: 058
     Dates: start: 20220505, end: 20220507
  58. ACETYLCYSTEINE [Concomitant]
     Active Substance: ACETYLCYSTEINE
     Indication: Productive cough
     Dosage: UNK
     Route: 048
     Dates: start: 20220506, end: 20220508
  59. INSULIN ASPART [Concomitant]
     Active Substance: INSULIN ASPART
     Indication: Hypoglycaemia
     Dosage: UNK
     Route: 058
     Dates: start: 20220507, end: 20220507
  60. TIGECYCLINE [Concomitant]
     Active Substance: TIGECYCLINE
     Indication: Infection
     Dosage: UNK
     Route: 042
     Dates: start: 20220508, end: 20220508
  61. VITAMIN C [Concomitant]
     Active Substance: ASCORBIC ACID
     Indication: Fluid replacement
     Dosage: UNK
     Route: 042
     Dates: start: 20220508, end: 20220508
  62. VITAMIN C [Concomitant]
     Active Substance: ASCORBIC ACID
     Indication: Infusion
     Dosage: UNK
     Route: 042
     Dates: start: 20220509, end: 20220509
  63. VITAMIN B6 [Concomitant]
     Active Substance: PYRIDOXINE HYDROCHLORIDE
     Indication: Fluid replacement
     Dosage: UNK
     Route: 042
     Dates: start: 20220508, end: 20220508
  64. OMEPRAZOLE SODIUM [Concomitant]
     Active Substance: OMEPRAZOLE SODIUM
     Indication: Prophylaxis against gastrointestinal ulcer
     Dosage: UNK
     Route: 042
     Dates: start: 20220508, end: 20220513
  65. METOPROLOL SUCCINATE [Concomitant]
     Active Substance: METOPROLOL SUCCINATE
     Indication: Arrhythmia
     Dosage: SUSTAINED - RELEASE TABLETS
     Route: 048
     Dates: start: 20220509, end: 20220513
  66. METOPROLOL SUCCINATE [Concomitant]
     Active Substance: METOPROLOL SUCCINATE
     Dosage: EXTENDED-RELEASE TABLET, NASOGASTRIC
     Route: 045
     Dates: start: 20220513, end: 20220530
  67. ALBUMIN HUMAN [Concomitant]
     Active Substance: ALBUMIN HUMAN
     Indication: Nutritional supplementation
     Dosage: UNK
     Route: 042
     Dates: start: 20220509, end: 20220513
  68. ALBUMIN HUMAN [Concomitant]
     Active Substance: ALBUMIN HUMAN
     Dosage: UNK
     Route: 042
     Dates: start: 20220528, end: 20220528
  69. ALBUMIN HUMAN [Concomitant]
     Active Substance: ALBUMIN HUMAN
     Dosage: UNK
     Route: 042
     Dates: start: 20220525, end: 20220530
  70. CEFOPERAZONE SODIUM\SULBACTAM SODIUM [Concomitant]
     Active Substance: CEFOPERAZONE SODIUM\SULBACTAM SODIUM
     Indication: Infection
     Dosage: UNK
     Route: 042
     Dates: start: 20220510, end: 20220513
  71. CEFOPERAZONE SODIUM\SULBACTAM SODIUM [Concomitant]
     Active Substance: CEFOPERAZONE SODIUM\SULBACTAM SODIUM
     Dosage: UNK
     Route: 042
     Dates: start: 20220513, end: 20220530
  72. MICONAZOLE NITRATE [Concomitant]
     Active Substance: MICONAZOLE NITRATE
     Indication: Antifungal treatment
     Dosage: POWDER
     Route: 061
     Dates: start: 20220429, end: 20220429
  73. GLYCERIN [Concomitant]
     Active Substance: GLYCERIN
     Indication: Gastrointestinal disorder
     Dosage: UNK
     Route: 054
     Dates: start: 20220502, end: 20220502
  74. GLYCERIN [Concomitant]
     Active Substance: GLYCERIN
     Dosage: UNK
     Route: 054
     Dates: start: 20220508, end: 20220508
  75. GLYCERIN [Concomitant]
     Active Substance: GLYCERIN
     Dosage: UNK
     Route: 054
     Dates: start: 20220511, end: 20220511
  76. GLYCERIN [Concomitant]
     Active Substance: GLYCERIN
     Dosage: UNK
     Route: 054
     Dates: start: 20220527, end: 20220527
  77. CETYLPYRIDINIUM CHLORIDE [Concomitant]
     Active Substance: CETYLPYRIDINIUM CHLORIDE
     Indication: Oral disorder
     Dosage: UNK
     Route: 050
     Dates: start: 20220508, end: 20220508
  78. LACTULOSE [Concomitant]
     Active Substance: LACTULOSE
     Indication: Gastrointestinal disorder
     Dosage: UNK
     Route: 048
     Dates: start: 20220508, end: 20220508
  79. LACTULOSE [Concomitant]
     Active Substance: LACTULOSE
     Dosage: NASOGASTRIC
     Route: 045
     Dates: start: 20220527, end: 20220527
  80. SODIUM BICARBONATE [Concomitant]
     Active Substance: SODIUM BICARBONATE
     Indication: Acidosis
     Dosage: UNK
     Route: 042
     Dates: start: 20220508, end: 20220508
  81. SODIUM BICARBONATE [Concomitant]
     Active Substance: SODIUM BICARBONATE
     Dosage: UNK
     Route: 042
     Dates: start: 20220529, end: 20220530
  82. ESMOLOL HYDROCHLORIDE [Concomitant]
     Active Substance: ESMOLOL HYDROCHLORIDE
     Indication: Arrhythmia
     Dosage: UNK
     Route: 042
     Dates: start: 20220509, end: 20220509
  83. ESMOLOL HYDROCHLORIDE [Concomitant]
     Active Substance: ESMOLOL HYDROCHLORIDE
     Dosage: UNK
     Route: 042
     Dates: start: 20220528, end: 20220528
  84. RINGER LACTATE [CALCIUM CHLORIDE DIHYDRATE;POTASSIUM CHLORIDE;SODIUM C [Concomitant]
     Indication: Fluid replacement
     Dosage: UNK
     Route: 042
     Dates: start: 20220509, end: 20220509
  85. CEFTAZIDIME [Concomitant]
     Active Substance: CEFTAZIDIME
     Indication: Infection
     Dosage: UNK
     Route: 042
     Dates: start: 20220509, end: 20220509
  86. AMIODARONE HYDROCHLORIDE [Concomitant]
     Active Substance: AMIODARONE HYDROCHLORIDE
     Indication: Arrhythmia
     Dosage: UNK
     Route: 042
     Dates: start: 20220512
  87. AMIODARONE HYDROCHLORIDE [Concomitant]
     Active Substance: AMIODARONE HYDROCHLORIDE
     Dosage: UNK
     Route: 042
     Dates: start: 20220528, end: 20220528
  88. AMIODARONE HYDROCHLORIDE [Concomitant]
     Active Substance: AMIODARONE HYDROCHLORIDE
     Dosage: UNK
     Route: 042
     Dates: start: 20220529, end: 20220529
  89. OXYGEN [Concomitant]
     Active Substance: OXYGEN
     Indication: COVID-19
     Dosage: PRESSURE OXYGEN, INHALATION (INH)
     Route: 055
     Dates: start: 20220513, end: 20220515
  90. UNSPECIFIED INGREDIENT [Concomitant]
     Active Substance: UNSPECIFIED INGREDIENT
     Indication: Nutritional supplementation
     Dosage: NASOGASTRIC, ENTERAL NUTRIENT SUSPENSION
     Route: 045
     Dates: start: 20220513, end: 20220530
  91. RABEPRAZOLE SODIUM [Concomitant]
     Active Substance: RABEPRAZOLE SODIUM
     Indication: Prophylaxis against gastrointestinal ulcer
     Dosage: ENTERIC CAPSULES
     Route: 048
     Dates: start: 20220513, end: 20220528
  92. RABEPRAZOLE SODIUM [Concomitant]
     Active Substance: RABEPRAZOLE SODIUM
     Dosage: NASOGASTRIC
     Route: 045
     Dates: start: 20220528, end: 20220530
  93. THYMUS SPP. [Concomitant]
     Indication: COVID-19
     Dosage: THYMUS METHOD FOR INJECTION
     Route: 058
     Dates: start: 20220513, end: 20220516
  94. VITAMIN K1 [Concomitant]
     Active Substance: PHYTONADIONE
     Indication: Prophylaxis
     Dosage: UNK
     Route: 030
     Dates: start: 20220514, end: 20220528
  95. LEVOTHYROXINE SODIUM [Concomitant]
     Active Substance: LEVOTHYROXINE SODIUM
     Indication: Supplementation therapy
     Dosage: NASOGASTRIC
     Route: 045
     Dates: start: 20220514, end: 20220526
  96. ENOXAPARIN SODIUM [Concomitant]
     Active Substance: ENOXAPARIN SODIUM
     Indication: COVID-19
     Dosage: UNK
     Route: 058
     Dates: start: 20220516, end: 20220526
  97. ENOXAPARIN SODIUM [Concomitant]
     Active Substance: ENOXAPARIN SODIUM
     Indication: Anticoagulant therapy
     Dosage: UNK
     Route: 058
     Dates: start: 20220526, end: 20220528
  98. ENOXAPARIN SODIUM [Concomitant]
     Active Substance: ENOXAPARIN SODIUM
     Dosage: UNK
     Route: 058
     Dates: start: 20220529, end: 20220529
  99. ATORVASTATIN CALCIUM [Concomitant]
     Active Substance: ATORVASTATIN CALCIUM
     Indication: Lipid metabolism disorder
     Dosage: NASOGASTRIC
     Route: 045
     Dates: start: 20220523, end: 20220530
  100. FUROSEMIDE [Concomitant]
     Active Substance: FUROSEMIDE
     Indication: Polyuria
     Dosage: UNK
     Route: 042
     Dates: start: 20220526, end: 20220528
  101. FUROSEMIDE [Concomitant]
     Active Substance: FUROSEMIDE
     Dosage: UNK
     Route: 042
     Dates: start: 20220529, end: 20220529
  102. FUROSEMIDE [Concomitant]
     Active Substance: FUROSEMIDE
     Dosage: UNK
     Route: 042
     Dates: start: 20220528, end: 20220530
  103. RECOMBINANT HUMAN BRAIN NATRIURETIC PEPTIDE [Concomitant]
     Indication: Cardiac failure
     Dosage: UNK
     Route: 042
     Dates: start: 20220526, end: 20220530
  104. ASPIRIN [Concomitant]
     Active Substance: ASPIRIN
     Indication: Platelet aggregation abnormal
     Dosage: NASOGASTRIC
     Route: 045
     Dates: start: 20220526, end: 20220530
  105. CLOPIDOGREL BISULFATE [Concomitant]
     Active Substance: CLOPIDOGREL BISULFATE
     Indication: Platelet aggregation abnormal
     Dosage: NASOGASTRIC
     Route: 045
     Dates: start: 20220526, end: 20220530
  106. IVABRADINE [Concomitant]
     Active Substance: IVABRADINE
     Indication: Cardiac failure
     Dosage: UNK
     Route: 048
     Dates: start: 20220527, end: 20220530
  107. GLUTATHIONE [Concomitant]
     Active Substance: GLUTATHIONE
     Indication: Hepatobiliary disorder prophylaxis
     Dosage: UNK
     Route: 042
     Dates: start: 20220529, end: 20220530
  108. PROPOFOL [Concomitant]
     Active Substance: PROPOFOL
     Indication: Feeling of relaxation
     Dosage: PROPOFOL EMULSION
     Route: 042
     Dates: start: 20220515, end: 20220519
  109. PROPOFOL [Concomitant]
     Active Substance: PROPOFOL
     Indication: Pain
     Dosage: PROPOFOL EMULSION
     Route: 042
     Dates: start: 20220516, end: 20220516
  110. PROPOFOL [Concomitant]
     Active Substance: PROPOFOL
     Dosage: PROPOFOL EMULSION
     Route: 042
     Dates: start: 20220518, end: 20220518
  111. REMIFENTANIL HYDROCHLORIDE [Concomitant]
     Active Substance: REMIFENTANIL HYDROCHLORIDE
     Indication: Analgesic therapy
     Dosage: UNK
     Route: 042
     Dates: start: 20220515, end: 20220515
  112. REMIFENTANIL HYDROCHLORIDE [Concomitant]
     Active Substance: REMIFENTANIL HYDROCHLORIDE
     Indication: Pain
     Dosage: UNK
     Route: 042
     Dates: start: 20220528, end: 20220528
  113. REMIFENTANIL HYDROCHLORIDE [Concomitant]
     Active Substance: REMIFENTANIL HYDROCHLORIDE
     Dosage: UNK
     Route: 042
     Dates: start: 20220529, end: 20220529
  114. NOREPINEPHRINE BITARTRATE [Concomitant]
     Active Substance: NOREPINEPHRINE BITARTRATE
     Indication: Hypotension
     Dosage: UNK
     Route: 042
     Dates: start: 20220515, end: 20220516
  115. ROCURONIUM BROMIDE [Concomitant]
     Active Substance: ROCURONIUM BROMIDE
     Indication: Muscle relaxant therapy
     Dosage: UNK
     Route: 042
     Dates: start: 20220515, end: 20220515
  116. DEXMEDETOMIDINE HYDROCHLORIDE [Concomitant]
     Active Substance: DEXMEDETOMIDINE HYDROCHLORIDE
     Indication: Feeling of relaxation
     Dosage: UNK
     Route: 042
     Dates: start: 20220523, end: 20220528
  117. NOREPINEPHRINE BITARTRATE [Concomitant]
     Active Substance: NOREPINEPHRINE BITARTRATE
     Indication: Hypotension
     Dosage: UNK
     Route: 042
     Dates: start: 20220517, end: 20220518
  118. NOREPINEPHRINE BITARTRATE [Concomitant]
     Active Substance: NOREPINEPHRINE BITARTRATE
     Dosage: UNK
     Route: 048
     Dates: start: 20220519, end: 20220519
  119. NOREPINEPHRINE BITARTRATE [Concomitant]
     Active Substance: NOREPINEPHRINE BITARTRATE
     Dosage: UNK
     Route: 042
     Dates: start: 20220528, end: 20220528
  120. NOREPINEPHRINE BITARTRATE [Concomitant]
     Active Substance: NOREPINEPHRINE BITARTRATE
     Dosage: UNK
     Route: 042
     Dates: start: 20220529, end: 20220529
  121. NOREPINEPHRINE BITARTRATE [Concomitant]
     Active Substance: NOREPINEPHRINE BITARTRATE
     Dosage: UNK
     Route: 042
     Dates: start: 20220530, end: 20220530
  122. COMPOUND CHLORHEXIDINE GARGLE [Concomitant]
     Indication: Therapeutic gargle
     Dosage: UNK
     Route: 050
     Dates: start: 20220525
  123. IVABRADINE HYDROCHLORIDE [Concomitant]
     Active Substance: IVABRADINE HYDROCHLORIDE
     Indication: Cardiac failure
     Dosage: UNK
     Route: 048
     Dates: start: 20220527
  124. CALCIUM GLUCONATE [Concomitant]
     Active Substance: CALCIUM GLUCONATE
     Indication: Mineral supplementation
     Dosage: UNK
     Route: 042
     Dates: start: 20220528, end: 20220528
  125. DOPAMINE [Concomitant]
     Active Substance: DOPAMINE HYDROCHLORIDE
     Indication: Hypotension
     Dosage: UNK
     Route: 042
     Dates: start: 20220529, end: 20220529
  126. DOPAMINE [Concomitant]
     Active Substance: DOPAMINE HYDROCHLORIDE
     Dosage: UNK
     Route: 042
     Dates: start: 20220530, end: 20220530
  127. METOCLOPRAMIDE [Concomitant]
     Active Substance: METOCLOPRAMIDE
     Indication: Gastrointestinal motility disorder
     Dosage: UNK
     Route: 030
     Dates: start: 20220529, end: 20220529
  128. DEXTROSE [Concomitant]
     Active Substance: DEXTROSE\DEXTROSE MONOHYDRATE
     Indication: Fluid replacement
     Dosage: UNK
     Route: 042
     Dates: start: 20220530, end: 20220530
  129. EPINEPHRINE [Concomitant]
     Active Substance: EPINEPHRINE
     Indication: Cardiac disorder
     Dosage: UNK
     Route: 042
     Dates: start: 20220530, end: 20220530

REACTIONS (1)
  - Overdose [Unknown]

NARRATIVE: CASE EVENT DATE: 20220101
